FAERS Safety Report 21322164 (Version 1)
Quarter: 2022Q3

REPORT INFORMATION
  Report Type: Spontaneous
  Country: US (occurrence: None)
  Receive Date: 20220909
  Receipt Date: 20220909
  Transmission Date: 20221026
  Serious: Yes (Death)
  Sender: FDA-Public Use
  Company Number: None

PATIENT
  Age: 82 Year
  Sex: Male

DRUGS (20)
  1. ABIRATERONE ACETATE [Suspect]
     Active Substance: ABIRATERONE ACETATE
     Indication: Prostate cancer
     Dosage: FREQUENCY : DAILY;?
     Route: 048
     Dates: start: 202206, end: 20220829
  2. BISACODYL [Concomitant]
     Active Substance: BISACODYL
  3. CETIRIZINE [Concomitant]
     Active Substance: CETIRIZINE HYDROCHLORIDE
  4. DOCUSATE [Concomitant]
  5. FINASTERIDE [Concomitant]
  6. GABAPENTIN [Concomitant]
  7. HYDROXYZINE [Concomitant]
  8. IRESARTAN [Concomitant]
  9. LACTULOSE [Concomitant]
  10. METAMUCIL [Concomitant]
     Active Substance: PLANTAGO SEED
  11. MIRALAX [Concomitant]
  12. MONTELUKAST [Concomitant]
  13. NORCO [Concomitant]
  14. OMEPRAZOLE [Concomitant]
  15. OXYCODONE [Concomitant]
  16. PREDNISONE [Concomitant]
  17. SENNA [Concomitant]
  18. TAMSULOSIN [Concomitant]
  19. TERBINAFINE [Concomitant]
  20. TIZANIDINE [Concomitant]

REACTIONS (1)
  - Death [None]

NARRATIVE: CASE EVENT DATE: 20220829
